FAERS Safety Report 8052543-X (Version None)
Quarter: 2012Q1

REPORT INFORMATION
  Report Type: 
  Country: None (occurrence: None)
  Receive Date: 20120112
  Receipt Date: 20120106
  Transmission Date: 20120608
  Serious: Yes (Other)
  Sender: FDA-Public Use
  Company Number: 1000022183

PATIENT
  Age: 49 Year
  Sex: Male

DRUGS (5)
  1. TRUVADA (TENOFOVIR, EMTRICITABINE) (TABLETS) (TENOFOVIR, EMTRICITABINE [Concomitant]
  2. RITONAVIR [Suspect]
     Indication: HIV INFECTION
     Dosage: 100 MG (100 MG, 1 IN 1 D), ORAL
     Route: 048
     Dates: start: 20060101
  3. ALPRAZOLAM (ALPRAZOLAM) (0.5 MILLIGRAM, TABLETS) (ALPRAZOLAM) [Concomitant]
  4. LEXAPRO [Suspect]
     Indication: DEPRESSION
     Dosage: 10 MG (10 MG, 1 IN 1 D), ORAL
     Route: 048
     Dates: start: 20110427, end: 20110429
  5. REYATAZ (ATAZANAVIR SULFATE) (CAPSULES) (ATAZANAVIR SULFATE) [Concomitant]

REACTIONS (2)
  - DRUG INTERACTION [None]
  - TRANSIENT ISCHAEMIC ATTACK [None]
